FAERS Safety Report 10598271 (Version 1)
Quarter: 2014Q4

REPORT INFORMATION
  Report Type: Spontaneous
  Country: US (occurrence: US)
  Receive Date: 20141121
  Receipt Date: 20141121
  Transmission Date: 20150529
  Serious: Yes (Other)
  Sender: FDA-Public Use
  Company Number: US-PFIZER INC-2014316709

PATIENT
  Age: 58 Year
  Sex: Female
  Weight: 61.6 kg

DRUGS (4)
  1. RANITIDINE [Concomitant]
     Active Substance: RANITIDINE\RANITIDINE HYDROCHLORIDE
     Dosage: 150 MG, UNK
  2. ZOLPIDEM [Concomitant]
     Active Substance: ZOLPIDEM\ZOLPIDEM TARTRATE
     Indication: INSOMNIA
     Dosage: 10 MG, DAILY
     Route: 048
  3. CALCIUM 600+ D(3) [Concomitant]
     Dosage: 600 MG, UNK
  4. AROMASIN [Suspect]
     Active Substance: EXEMESTANE
     Indication: BREAST CANCER
     Dosage: 25 MG, DAILY
     Route: 048
     Dates: start: 201306

REACTIONS (5)
  - Fatigue [Unknown]
  - Post procedural complication [Unknown]
  - Infection [Unknown]
  - Musculoskeletal pain [Unknown]
  - Osteopenia [Unknown]

NARRATIVE: CASE EVENT DATE: 20131002
